FAERS Safety Report 9413271 (Version 1)
Quarter: 2013Q3

REPORT INFORMATION
  Report Type: Spontaneous
  Country: US (occurrence: US)
  Receive Date: 20130722
  Receipt Date: 20130722
  Transmission Date: 20140515
  Serious: Yes (Hospitalization, Other)
  Sender: FDA-Public Use
  Company Number: CHPA2013US011269

PATIENT
  Age: 82 Year
  Sex: Female

DRUGS (6)
  1. GAS-X EXTSTR CHEWABLE TABS CHERRY CREME [Suspect]
     Indication: FLATULENCE
     Dosage: UNK, UNK
     Route: 048
  2. GAS-X EXTSTR CHEWABLE TABS CHERRY CREME [Suspect]
     Indication: ABDOMINAL DISTENSION
  3. GAS-X EXTRA STRENGTH SOFTGELS [Suspect]
     Indication: FLATULENCE
     Dosage: UNK, UNK
     Route: 048
  4. GAS-X EXTRA STRENGTH SOFTGELS [Suspect]
     Indication: ABDOMINAL DISTENSION
  5. GAS-X UNKNOWN THIN STRIP [Suspect]
     Indication: FLATULENCE
     Dosage: UNK, UNK
  6. GAS-X UNKNOWN THIN STRIP [Suspect]
     Indication: ABDOMINAL DISTENSION

REACTIONS (3)
  - Arterial occlusive disease [Recovering/Resolving]
  - Myocardial infarction [Recovering/Resolving]
  - Off label use [Unknown]
